FAERS Safety Report 5054123-7 (Version None)
Quarter: 2006Q3

REPORT INFORMATION
  Report Type: 
  Country: None (occurrence: None)
  Receive Date: 20060713
  Receipt Date: 20060704
  Transmission Date: 20061208
  Serious: Yes (Death, Life-Threatening)
  Sender: FDA-Public Use
  Company Number: 2006EU001824

PATIENT
  Sex: Male

DRUGS (3)
  1. PROGRAF [Suspect]
     Indication: LIVER TRANSPLANT
     Dosage: UID/QD, ORAL
     Route: 048
     Dates: start: 20060503, end: 20060522
  2. CELLCEPT [Suspect]
     Indication: LIVER TRANSPLANT
     Dosage: D, ORAL
     Route: 048
     Dates: start: 20060512, end: 20060515
  3. SOLU-MEDROL [Suspect]
     Dosage: IV NOS
     Route: 042
     Dates: start: 20060503

REACTIONS (9)
  - BACTERIAL INFECTION [None]
  - DRUG HYPERSENSITIVITY [None]
  - GRAFT VERSUS HOST DISEASE [None]
  - HYPERTHERMIA [None]
  - MULTI-ORGAN FAILURE [None]
  - NIKOLSKY'S SIGN [None]
  - PATHOGEN RESISTANCE [None]
  - STAPHYLOCOCCAL INFECTION [None]
  - TOXIC EPIDERMAL NECROLYSIS [None]
